FAERS Safety Report 16237724 (Version 1)
Quarter: 2019Q2

REPORT INFORMATION
  Report Type: Spontaneous
  Country: US (occurrence: US)
  Receive Date: 20190424
  Receipt Date: 20190424
  Transmission Date: 20190711
  Serious: No
  Sender: FDA-Public Use
  Company Number: None

PATIENT
  Age: 67 Year
  Sex: Female
  Weight: 60.75 kg

DRUGS (1)
  1. CHLORHEXIDINE GLUCONATE .12% RINSE [Suspect]
     Active Substance: CHLORHEXIDINE GLUCONATE
     Indication: ORAL INFECTION
     Dates: start: 20190321, end: 20190331

REACTIONS (2)
  - Ageusia [None]
  - Dysgeusia [None]

NARRATIVE: CASE EVENT DATE: 20190321
